FAERS Safety Report 6910372-1 (Version None)
Quarter: 2010Q3

REPORT INFORMATION
  Report Type: 
  Country: None (occurrence: None)
  Receive Date: 20100806
  Receipt Date: 20100728
  Transmission Date: 20110219
  Serious: Yes (Life-Threatening)
  Sender: FDA-Public Use
  Company Number: CO-WYE-H01665007

PATIENT
  Sex: Female
  Weight: 60 kg

DRUGS (8)
  1. DESVENLAFAXINE SUCCINATE MONOHYDRATE [Suspect]
     Indication: MAJOR DEPRESSION
     Route: 048
     Dates: start: 20071107, end: 20071113
  2. DESVENLAFAXINE SUCCINATE MONOHYDRATE [Suspect]
     Route: 048
     Dates: start: 20071114, end: 20071120
  3. DESVENLAFAXINE SUCCINATE MONOHYDRATE [Suspect]
     Route: 048
     Dates: start: 20071121, end: 20071205
  4. ENALAPRIL [Concomitant]
     Indication: HYPERTENSION
     Dosage: UNSPECIFIED
     Route: 048
  5. TRAZODONE [Concomitant]
     Indication: INSOMNIA
     Dosage: UNSPECIFIED
     Route: 065
     Dates: start: 20071207, end: 20071208
  6. PRAZOSIN [Concomitant]
     Indication: HYPERTENSION
     Dosage: UNSPECIFIED
     Route: 065
  7. HYDROCHLOROTHIAZIDE [Concomitant]
     Indication: HYPERTENSION
     Dosage: UNSPECIFIED
     Route: 048
  8. NIFEDIPINE [Concomitant]
     Indication: HYPERTENSION
     Dosage: UNSPECIFIED
     Route: 048

REACTIONS (1)
  - SUICIDE ATTEMPT [None]
